FAERS Safety Report 4870228-5 (Version None)
Quarter: 2005Q4

REPORT INFORMATION
  Report Type: 
  Country: None (occurrence: None)
  Receive Date: 20051228
  Receipt Date: 20051219
  Transmission Date: 20060501
  Serious: Yes (Death)
  Sender: FDA-Public Use
  Company Number: MK200512-0399-1

PATIENT
  Age: 41 Year
  Sex: Male

DRUGS (4)
  1. METHADOSE [Suspect]
     Dates: end: 20051211
  2. DEPAKOTE [Concomitant]
  3. EFFEXOR [Concomitant]
  4. ANTIBIOTIC [Concomitant]

REACTIONS (2)
  - INTENTIONAL DRUG MISUSE [None]
  - SELF-MEDICATION [None]
